FAERS Safety Report 4308660-0 (Version None)
Quarter: 2004Q1

REPORT INFORMATION
  Report Type: 
  Country: None (occurrence: None)
  Receive Date: 20040301
  Receipt Date: 20040220
  Transmission Date: 20041129
  Serious: Yes (Death, Hospitalization)
  Sender: FDA-Public Use
  Company Number: MK200402-0206-1

PATIENT
  Age: 35 Year
  Sex: Male

DRUGS (4)
  1. METHADONE HYDROCHLORIDE [Suspect]
     Dosage: 70 MG
  2. OXYCODONE [Concomitant]
  3. ZOLPIDEM TARTRATE [Concomitant]
  4. CLONIDINE [Concomitant]

REACTIONS (4)
  - DRUG DEPENDENCE [None]
  - DRUG SCREEN POSITIVE [None]
  - DRUG WITHDRAWAL SYNDROME [None]
  - VOMITING [None]
